FAERS Safety Report 4517938-7 (Version None)
Quarter: 2004Q4

REPORT INFORMATION
  Report Type: 
  Country: None (occurrence: None)
  Receive Date: 20041130
  Receipt Date: 20041118
  Transmission Date: 20050328
  Serious: Yes (Other)
  Sender: FDA-Public Use
  Company Number: A-CH2004-04331

PATIENT
  Age: 25 Year
  Sex: Female

DRUGS (13)
  1. TRACLEER [Suspect]
     Indication: PULMONARY HYPERTENSION
     Dosage: 62.5 MG, BID, ORAL; 125 MG, BID, ORAL
     Route: 048
     Dates: start: 20030912, end: 20031009
  2. TRACLEER [Suspect]
     Indication: PULMONARY HYPERTENSION
     Dosage: 62.5 MG, BID, ORAL; 125 MG, BID, ORAL
     Route: 048
     Dates: start: 20031010, end: 20040116
  3. FLOLAN [Concomitant]
  4. COUMADIN [Concomitant]
  5. LASIX [Concomitant]
  6. SYMBICORT [Concomitant]
  7. BRICANYL [Concomitant]
  8. LEVOTHYROXINE SODIUM [Concomitant]
  9. OMEPRAZOLE [Concomitant]
  10. IMODIUM [Concomitant]
  11. BEFIZAL (BEZAFIBRATE) [Concomitant]
  12. VIRLIX (CETERIZINE HYDROCHLORIDE) [Concomitant]
  13. TRIELLA (ETHINYLESTRADIOL) [Concomitant]

REACTIONS (4)
  - CONDITION AGGRAVATED [None]
  - DRUG INEFFECTIVE [None]
  - INTERNATIONAL NORMALISED RATIO INCREASED [None]
  - PULMONARY HYPERTENSION [None]
